FAERS Safety Report 9436724 (Version 2)
Quarter: 2013Q4

REPORT INFORMATION
  Report Type: Report from Study
  Country: CA (occurrence: CA)
  Receive Date: 20130802
  Receipt Date: 20131025
  Transmission Date: 20140711
  Serious: Yes (Hospitalization)
  Sender: FDA-Public Use
  Company Number: CA-JNJFOC-20130716858

PATIENT
  Age: 58 Year
  Sex: Male
  Weight: 68 kg

DRUGS (3)
  1. REMICADE [Suspect]
     Indication: CROHN^S DISEASE
     Dosage: FOR 52 WEEKS
     Route: 042
     Dates: start: 20101026
  2. PREDNISONE [Concomitant]
     Dosage: EVERY 14 DAYS IT IS REDUCED BY 5 MILLIGRAM
     Route: 065
     Dates: start: 20130825
  3. PLAVIX [Concomitant]
     Indication: CEREBROVASCULAR ACCIDENT
     Route: 065

REACTIONS (4)
  - Umbilical hernia [Unknown]
  - Rectal haemorrhage [Unknown]
  - Weight decreased [Unknown]
  - Cough [Unknown]
